FAERS Safety Report 15299377 (Version 1)
Quarter: 2018Q3

REPORT INFORMATION
  Report Type: Spontaneous
  Country: US (occurrence: US)
  Receive Date: 20180821
  Receipt Date: 20180821
  Transmission Date: 20181010
  Serious: Yes (Hospitalization, Other)
  Sender: FDA-Public Use
  Company Number: US-BRISTOL-MYERS SQUIBB COMPANY-BMS-2018-077954

PATIENT
  Sex: Female

DRUGS (1)
  1. OPDIVO [Suspect]
     Active Substance: NIVOLUMAB
     Indication: CHOLANGIOCARCINOMA
     Dosage: UNAVAILABLE
     Route: 065

REACTIONS (13)
  - Epigastric discomfort [Unknown]
  - Colitis [Unknown]
  - Asthenia [Unknown]
  - Arthralgia [Unknown]
  - Product use in unapproved indication [Unknown]
  - Arthritis [Unknown]
  - Peripheral swelling [Unknown]
  - Deafness [Unknown]
  - Clubbing [Unknown]
  - Hypercalcaemia [Unknown]
  - Mucosal inflammation [Unknown]
  - Fatigue [Unknown]
  - Joint swelling [Unknown]
